FAERS Safety Report 9372712 (Version 3)
Quarter: 2014Q2

REPORT INFORMATION
  Report Type: Report from Study
  Country: US (occurrence: US)
  Receive Date: 20130627
  Receipt Date: 20140626
  Transmission Date: 20141212
  Serious: Yes (Hospitalization, Other)
  Sender: FDA-Public Use
  Company Number: US-MYLANLABS-2013S1006485

PATIENT
  Age: 25 Year
  Sex: Female
  Weight: 60.78 kg

DRUGS (8)
  1. CLOZAPINE TABLETS [Suspect]
     Indication: SCHIZOPHRENIA
     Dates: end: 20130401
  2. CLOZAPINE TABLETS [Suspect]
     Indication: PSYCHOTIC DISORDER
     Dates: end: 20130401
  3. CLOZAPINE TABLETS [Suspect]
     Indication: SCHIZOPHRENIA
     Route: 048
     Dates: start: 20130422, end: 201405
  4. CLOZAPINE TABLETS [Suspect]
     Indication: PSYCHOTIC DISORDER
     Route: 048
     Dates: start: 20130422, end: 201405
  5. ABILIFY [Concomitant]
     Route: 048
  6. DEPAKOTE [Concomitant]
  7. COGENTIN [Concomitant]
     Route: 048
  8. ATENOLOL [Concomitant]
     Route: 048

REACTIONS (4)
  - Granulocytopenia [Not Recovered/Not Resolved]
  - Paranoia [Not Recovered/Not Resolved]
  - Delusion [Recovered/Resolved]
  - Schizophrenia, disorganised type [Recovered/Resolved]
